FAERS Safety Report 6154069-7 (Version None)
Quarter: 2009Q2

REPORT INFORMATION
  Report Type: 
  Country: None (occurrence: None)
  Receive Date: 20090414
  Receipt Date: 20090402
  Transmission Date: 20091009
  Serious: Yes (Life-Threatening, Hospitalization)
  Sender: FDA-Public Use
  Company Number: GB-ROCHE-625706

PATIENT
  Age: 47 Year
  Sex: Male

DRUGS (2)
  1. KETOROLAC [Suspect]
     Indication: ANALGESIA
     Route: 042
     Dates: start: 20081010
  2. GENTAMICIN [Concomitant]
     Indication: INFECTION PROPHYLAXIS
     Route: 042
     Dates: start: 20081010

REACTIONS (5)
  - ANURIA [None]
  - HAEMATURIA [None]
  - RENAL FAILURE [None]
  - RENAL TUBULAR NECROSIS [None]
  - VOMITING [None]
